FAERS Safety Report 17957661 (Version 1)
Quarter: 2020Q2

REPORT INFORMATION
  Report Type: Spontaneous
  Country: DE (occurrence: DE)
  Receive Date: 20200629
  Receipt Date: 20200629
  Transmission Date: 20200714
  Serious: Yes (Hospitalization)
  Sender: FDA-Public Use
  Company Number: DE-TEVA-2020-DE-1791834

PATIENT
  Age: 83 Year
  Sex: Male

DRUGS (7)
  1. RIVAROXABAN [Concomitant]
     Active Substance: RIVAROXABAN
     Dosage: 15 MILLIGRAM DAILY; 1-0-0-0,
     Route: 048
  2. MOVICOL AROMAFREI [Concomitant]
     Dosage: NK MG / DAY, NEED, SACHET
     Route: 048
  3. HYDROCHLOROTHIAZID [Suspect]
     Active Substance: HYDROCHLOROTHIAZIDE
     Dosage: 25 MILLIGRAM DAILY; 1-0-0-0,
     Route: 048
  4. METOPROLOL. [Interacting]
     Active Substance: METOPROLOL
     Dosage: 190 MILLIGRAM DAILY;  1-0-1-0,
     Route: 048
  5. LEVOTHYROXINE SODIUM. [Concomitant]
     Active Substance: LEVOTHYROXINE SODIUM
     Dosage: .025 MILLIGRAM DAILY;  1-0-0-0,
     Route: 048
  6. ATORVASTATIN [Concomitant]
     Active Substance: ATORVASTATIN
     Dosage: 80 MILLIGRAM DAILY;  0-0-1-0,
     Route: 048
  7. RAMIPRIL. [Interacting]
     Active Substance: RAMIPRIL
     Dosage: 5 MILLIGRAM DAILY;  1-0-0-0
     Route: 048

REACTIONS (10)
  - Gait disturbance [Unknown]
  - Cognitive disorder [Unknown]
  - Tachycardia [Unknown]
  - Atrial fibrillation [Unknown]
  - Labelled drug-drug interaction medication error [Unknown]
  - Product prescribing error [Unknown]
  - Renal impairment [Unknown]
  - Troponin increased [Unknown]
  - Infection [Unknown]
  - Dysuria [Unknown]
